FAERS Safety Report 14084193 (Version 1)
Quarter: 2017Q4

REPORT INFORMATION
  Report Type: Spontaneous
  Country: US (occurrence: US)
  Receive Date: 20171013
  Receipt Date: 20171013
  Transmission Date: 20180321
  Serious: Yes (Disabling)
  Sender: FDA-Public Use
  Company Number: None

PATIENT
  Sex: Female
  Weight: 62.55 kg

DRUGS (1)
  1. NUVARING [Suspect]
     Active Substance: ETHINYL ESTRADIOL\ETONOGESTREL
     Indication: CONTRACEPTION
     Dosage: QUANTITY:1 VAGINAL RING;OTHER FREQUENCY:MONTHLY;?
     Route: 067
     Dates: start: 20170303, end: 20170830

REACTIONS (3)
  - Loss of libido [None]
  - Weight increased [None]
  - Vaginal discharge [None]

NARRATIVE: CASE EVENT DATE: 20170809
